FAERS Safety Report 9399702 (Version 1)
Quarter: 2013Q3

REPORT INFORMATION
  Report Type: Spontaneous
  Country: US (occurrence: US)
  Receive Date: 20130710
  Receipt Date: 20130710
  Transmission Date: 20140515
  Serious: Yes (Hospitalization, Other)
  Sender: FDA-Public Use
  Company Number: DAV-AE-DIA-13-07

PATIENT
  Age: 48 Year
  Sex: Female

DRUGS (3)
  1. DIAZEPAM [Suspect]
     Indication: SUBSTANCE USE
  2. HYDROCODONE [Concomitant]
  3. GABAPENTIN [Concomitant]

REACTIONS (4)
  - Somnolence [None]
  - Dry mouth [None]
  - Urinary retention [None]
  - Drug abuse [None]
